FAERS Safety Report 13608595 (Version 1)
Quarter: 2017Q2

REPORT INFORMATION
  Report Type: Spontaneous
  Country: BR (occurrence: BR)
  Receive Date: 20170602
  Receipt Date: 20170602
  Transmission Date: 20170830
  Serious: Yes (Hospitalization, Other)
  Sender: FDA-Public Use
  Company Number: BR-BAYER-2017-101438

PATIENT
  Age: 46 Year
  Sex: Female

DRUGS (1)
  1. MAGNEVISTAN [Suspect]
     Active Substance: GADOPENTETATE DIMEGLUMINE
     Indication: NUCLEAR MAGNETIC RESONANCE IMAGING
     Dosage: ONCE
     Dates: start: 20170513, end: 20170513

REACTIONS (4)
  - Anaphylactic reaction [Not Recovered/Not Resolved]
  - Laryngeal oedema [Not Recovered/Not Resolved]
  - Endotracheal intubation complication [Not Recovered/Not Resolved]
  - Subcutaneous emphysema [Not Recovered/Not Resolved]

NARRATIVE: CASE EVENT DATE: 20170513
